FAERS Safety Report 9931530 (Version 1)
Quarter: 2014Q1

REPORT INFORMATION
  Report Type: Spontaneous
  Country: CH (occurrence: None)
  Receive Date: 20140224
  Receipt Date: 20140224
  Transmission Date: 20141002
  Serious: Yes (Other)
  Sender: FDA-Public Use
  Company Number: 20140063

PATIENT
  Age: 50 Year
  Sex: Female
  Weight: 67 kg

DRUGS (1)
  1. FERINJECT [Suspect]
     Indication: IRON DEFICIENCY
     Dosage: 500 MG OVER 5 MINUTES

REACTIONS (6)
  - Blood pressure decreased [None]
  - Cardiovascular disorder [None]
  - Cold sweat [None]
  - Dizziness [None]
  - Tinnitus [None]
  - Visual impairment [None]
